FAERS Safety Report 8559362-6 (Version None)
Quarter: 2012Q3

REPORT INFORMATION
  Report Type: 
  Country: None (occurrence: None)
  Receive Date: 20120802
  Receipt Date: 20120801
  Transmission Date: 20120928
  Serious: Yes (Hospitalization)
  Sender: FDA-Public Use
  Company Number: PHHY2012AU054602

PATIENT
  Sex: Male

DRUGS (5)
  1. BENZTROPINE MESYLATE [Concomitant]
     Dosage: 0.5 MG, DAILY(NOCTE)
     Route: 048
  2. VALPROATE SODIUM [Concomitant]
     Dosage: 1 G, BD
     Route: 048
  3. CLOZARIL [Suspect]
     Dosage: 650 MG, DAILY
     Route: 048
  4. CLOZARIL [Suspect]
     Dosage: 500 MG
     Dates: start: 20051113
  5. ZUCLOPENTHIXOL [Concomitant]
     Dosage: 150 MG, (EVERY 2 WEEKS)
     Route: 030

REACTIONS (5)
  - HALLUCINATION, AUDITORY [None]
  - DECREASED APPETITE [None]
  - SCHIZOPHRENIA [None]
  - INSOMNIA [None]
  - CONSTIPATION [None]
